FAERS Safety Report 22177290 (Version 1)
Quarter: 2023Q2

REPORT INFORMATION
  Report Type: Spontaneous
  Country: US (occurrence: None)
  Receive Date: 20230405
  Receipt Date: 20230405
  Transmission Date: 20230722
  Serious: Yes (Disabling)
  Sender: FDA-Public Use
  Company Number: None

PATIENT
  Age: 71 Year
  Sex: Male
  Weight: 93.6 kg

DRUGS (12)
  1. PAXLOVID [Suspect]
     Active Substance: NIRMATRELVIR\RITONAVIR
     Indication: COVID-19 treatment
     Dosage: OTHER QUANTITY : 3 TABLET(S);?FREQUENCY : TWICE A DAY;?
     Route: 048
     Dates: start: 20230331, end: 20230404
  2. METHOTREXATE [Concomitant]
     Active Substance: METHOTREXATE
  3. LUBIPROSTONE [Concomitant]
     Active Substance: LUBIPROSTONE
  4. Metoprolol Tartrate (short acting) [Concomitant]
  5. Tamusulosin [Concomitant]
  6. FINASTERIDE [Concomitant]
     Active Substance: FINASTERIDE
  7. AMLODIPINE [Concomitant]
     Active Substance: AMLODIPINE BESYLATE
  8. LOSARTAN [Concomitant]
     Active Substance: LOSARTAN
  9. AMITRIPTYLINE [Concomitant]
     Active Substance: AMITRIPTYLINE
  10. VITAMINS [Concomitant]
     Active Substance: VITAMINS
  11. FOLIC ACID [Concomitant]
     Active Substance: FOLIC ACID
  12. POLYETHYLENE GLYCOL [Concomitant]
     Active Substance: POLYETHYLENE GLYCOL

REACTIONS (3)
  - Arthritis [None]
  - Arthralgia [None]
  - Gait disturbance [None]

NARRATIVE: CASE EVENT DATE: 20230402
